FAERS Safety Report 9959373 (Version 2)
Quarter: 2014Q1

REPORT INFORMATION
  Report Type: Report from Study
  Country: US (occurrence: US)
  Receive Date: 20140305
  Receipt Date: 20140305
  Transmission Date: 20141002
  Serious: No
  Sender: FDA-Public Use
  Company Number: US-ABBVIE-13P-163-1045250-00

PATIENT
  Sex: Male

DRUGS (2)
  1. HUMIRA [Suspect]
     Indication: MATERNAL EXPOSURE TIMING UNSPECIFIED
     Route: 064
  2. ANTIBIOTICS [Suspect]
     Indication: EAR INFECTION
     Route: 048
     Dates: start: 20130207, end: 20130209

REACTIONS (10)
  - Infantile spitting up [Recovering/Resolving]
  - Foetal exposure during pregnancy [Unknown]
  - Cow^s milk intolerance [Not Recovered/Not Resolved]
  - Gastrooesophageal reflux disease [Recovering/Resolving]
  - Hiccups [Recovering/Resolving]
  - Retching [Recovering/Resolving]
  - Irritability [Not Recovered/Not Resolved]
  - Ear infection [Recovered/Resolved]
  - Vomiting [Recovered/Resolved]
  - Infantile spitting up [Recovering/Resolving]
